FAERS Safety Report 13338951 (Version 6)
Quarter: 2017Q3

REPORT INFORMATION
  Report Type: Spontaneous
  Country: KR (occurrence: KR)
  Receive Date: 20170315
  Receipt Date: 20170822
  Transmission Date: 20171127
  Serious: Yes (Hospitalization, Other)
  Sender: FDA-Public Use
  Company Number: KR-009507513-1703KOR005653

PATIENT
  Age: 53 Year
  Sex: Male
  Weight: 72.6 kg

DRUGS (32)
  1. EMEND (FOSAPREPITANT DIMEGLUMINE) [Suspect]
     Active Substance: FOSAPREPITANT DIMEGLUMINE
     Indication: PROPHYLAXIS OF NAUSEA AND VOMITING
     Dosage: 150 MG, ONCE
     Route: 042
     Dates: start: 20160429, end: 20160429
  2. EMEND (FOSAPREPITANT DIMEGLUMINE) [Suspect]
     Active Substance: FOSAPREPITANT DIMEGLUMINE
     Dosage: 150 MG, ONCE
     Route: 042
     Dates: start: 20160522, end: 20160522
  3. EMEND (FOSAPREPITANT DIMEGLUMINE) [Suspect]
     Active Substance: FOSAPREPITANT DIMEGLUMINE
     Dosage: 150 MG, ONCE
     Route: 042
     Dates: start: 20160822, end: 20160822
  4. DEXA (DEXAMETHASONE SODIUM PHOSPHATE) [Concomitant]
     Indication: PROPHYLAXIS
     Dosage: 8 MG, ONCE; STRENGTH: 5MG/ML
     Route: 042
     Dates: start: 20160522, end: 20160522
  5. ACTINAMIDE [Concomitant]
     Dosage: 1 MG, ONCE
     Route: 030
     Dates: start: 20160620, end: 20160620
  6. LANSTON [Concomitant]
     Active Substance: LANSOPRAZOLE
     Indication: PROPHYLAXIS AGAINST GASTROINTESTINAL ULCER
     Dosage: 15 MG (1 TABLET), QD
     Route: 048
     Dates: start: 20160506, end: 20160512
  7. EMEND (FOSAPREPITANT DIMEGLUMINE) [Suspect]
     Active Substance: FOSAPREPITANT DIMEGLUMINE
     Dosage: 150 MG, ONCE
     Route: 042
     Dates: start: 20160703, end: 20160703
  8. DEXA (DEXAMETHASONE SODIUM PHOSPHATE) [Concomitant]
     Indication: PREMEDICATION
     Dosage: 4 MG, BID; STRENGTH: 5MG/ML
     Route: 042
     Dates: start: 20160430, end: 20160509
  9. DEXA (DEXAMETHASONE SODIUM PHOSPHATE) [Concomitant]
     Dosage: 8 MG, ONCE; STRENGTH: 5MG/ML
     Route: 042
     Dates: start: 20160611, end: 20160611
  10. DEXA (DEXAMETHASONE SODIUM PHOSPHATE) [Concomitant]
     Dosage: 8 MG, ONCE; STRENGTH: 5MG/ML
     Route: 042
     Dates: start: 20160703, end: 20160703
  11. CODAEWON FORTE [Concomitant]
     Indication: PRODUCTIVE COUGH
     Dosage: 1 ^PK^, TID
     Route: 048
     Dates: start: 20160730, end: 20160730
  12. CODEINE PHOSPHATE [Concomitant]
     Active Substance: CODEINE PHOSPHATE
     Indication: ANALGESIC THERAPY
     Dosage: 20 MG (1 TABLET), TID
     Route: 048
     Dates: start: 20160422, end: 20160506
  13. FOLIC ACID. [Concomitant]
     Active Substance: FOLIC ACID
     Indication: PROPHYLAXIS
     Dosage: 1 TABLET (1 MG), BID
     Route: 048
     Dates: start: 20160511
  14. ACTINAMIDE [Concomitant]
     Dosage: 1 MG, ONCE
     Route: 030
     Dates: start: 20160603, end: 20160603
  15. PROMAC (POLAPREZINC) [Concomitant]
     Active Substance: POLAPREZINC
     Indication: PROPHYLAXIS AGAINST GASTROINTESTINAL ULCER
     Dosage: 1 TABLET, BID
     Route: 048
     Dates: start: 20160511, end: 20160521
  16. DEXA (DEXAMETHASONE SODIUM PHOSPHATE) [Concomitant]
     Dosage: 8 MG, ONCE; STRENGTH: 5MG/ML
     Route: 042
     Dates: start: 20160729, end: 20160729
  17. HEPARIN SODIUM. [Concomitant]
     Active Substance: HEPARIN SODIUM
     Indication: PROPHYLAXIS
     Dosage: 1 ML, ONCE
     Route: 042
     Dates: start: 20160609, end: 20160609
  18. TARGIN [Concomitant]
     Active Substance: NALOXONE HYDROCHLORIDE\OXYCODONE HYDROCHLORIDE
     Indication: ANALGESIC THERAPY
     Dosage: 1 TABLET (10/5 MG), BID
     Route: 048
     Dates: start: 20160428
  19. LEGALON [Concomitant]
     Active Substance: MILK THISTLE
     Indication: PROPHYLAXIS
     Dosage: 140 MG (1 CAPSULE), TID
     Route: 048
     Dates: start: 20160421, end: 20160512
  20. CODAEWON FORTE [Concomitant]
     Indication: PRODUCTIVE COUGH
     Dosage: 1 ^PK^, TID
     Route: 048
     Dates: start: 20160427, end: 20160605
  21. HEPARIN SODIUM. [Concomitant]
     Active Substance: HEPARIN SODIUM
     Dosage: 1 ML, ONCE
     Route: 042
     Dates: start: 20160826, end: 20160826
  22. ACTINAMIDE [Concomitant]
     Indication: PROPHYLAXIS
     Dosage: 1 MG, ONCE
     Route: 030
     Dates: start: 20160511, end: 20160511
  23. ACTINAMIDE [Concomitant]
     Dosage: 1 MG, ONCE
     Route: 030
     Dates: start: 20160711, end: 20160711
  24. HEPARIN SODIUM. [Concomitant]
     Active Substance: HEPARIN SODIUM
     Indication: THROMBOSIS PROPHYLAXIS
     Dosage: 1 ML, BID
     Route: 058
     Dates: start: 20160415, end: 20160506
  25. HEPARIN SODIUM. [Concomitant]
     Active Substance: HEPARIN SODIUM
     Dosage: 5 ML, ONCE
     Route: 042
     Dates: start: 20160722, end: 20160722
  26. HEPARIN SODIUM. [Concomitant]
     Active Substance: HEPARIN SODIUM
     Dosage: 1 ML, ONCE
     Route: 042
     Dates: start: 20160819, end: 20160819
  27. WARFARIN SODIUM. [Concomitant]
     Active Substance: WARFARIN SODIUM
     Indication: PROPHYLAXIS
     Dosage: 1 MG, QD
     Route: 048
     Dates: start: 20160506
  28. EMEND (FOSAPREPITANT DIMEGLUMINE) [Suspect]
     Active Substance: FOSAPREPITANT DIMEGLUMINE
     Dosage: 150 MG, ONCE
     Route: 042
     Dates: start: 20160611, end: 20160611
  29. DEXA (DEXAMETHASONE SODIUM PHOSPHATE) [Concomitant]
     Dosage: 8 MG, BID; STRENGTH: 5MG/ML
     Route: 042
     Dates: start: 20160821, end: 20160822
  30. HEPARIN SODIUM. [Concomitant]
     Active Substance: HEPARIN SODIUM
     Dosage: 5 ML, QD
     Route: 042
     Dates: start: 20160804, end: 20160809
  31. EMEND (FOSAPREPITANT DIMEGLUMINE) [Suspect]
     Active Substance: FOSAPREPITANT DIMEGLUMINE
     Dosage: 150 MG, ONCE
     Route: 042
     Dates: start: 20160727, end: 20160727
  32. DEXA (DEXAMETHASONE SODIUM PHOSPHATE) [Concomitant]
     Dosage: 4 MG, BID; STRENGTH: 5MG/ML
     Route: 042
     Dates: start: 20160612, end: 20160612

REACTIONS (4)
  - Cytopenia [Recovered/Resolved]
  - Pneumonia [Recovered/Resolved]
  - Swelling [Recovered/Resolved]
  - Constipation [Recovered/Resolved]

NARRATIVE: CASE EVENT DATE: 20160520
